FAERS Safety Report 7353013-4 (Version None)
Quarter: 2011Q1

REPORT INFORMATION
  Report Type: 
  Country: None (occurrence: None)
  Receive Date: 20110315
  Receipt Date: 20101129
  Transmission Date: 20110831
  Serious: Yes (Hospitalization)
  Sender: FDA-Public Use
  Company Number: A0899024A

PATIENT
  Age: 58 Year
  Sex: Male

DRUGS (1)
  1. AVANDIA [Suspect]
     Dates: start: 19990101, end: 20070101

REACTIONS (3)
  - HEART RATE DECREASED [None]
  - LOSS OF CONSCIOUSNESS [None]
  - CARDIAC PACEMAKER INSERTION [None]
